FAERS Safety Report 17491500 (Version 2)
Quarter: 2020Q1

REPORT INFORMATION
  Report Type: Spontaneous
  Country: US (occurrence: US)
  Receive Date: 20200303
  Receipt Date: 20200319
  Transmission Date: 20200409
  Serious: Yes (Hospitalization, Other)
  Sender: FDA-Public Use
  Company Number: US-PFIZER INC-2020092763

PATIENT
  Age: 46 Year
  Sex: Male

DRUGS (3)
  1. PHENYTOIN. [Suspect]
     Active Substance: PHENYTOIN
     Indication: GENERALISED TONIC-CLONIC SEIZURE
     Dosage: 300 MG, DAILY
  2. DIAZEPAM. [Suspect]
     Active Substance: DIAZEPAM
     Indication: GENERALISED TONIC-CLONIC SEIZURE
     Dosage: 5 MG, 4X/DAY
  3. PENTAZOCIN [PENTAZOCINE HYDROCHLORIDE] [Concomitant]
     Active Substance: PENTAZOCINE HYDROCHLORIDE
     Indication: BACK PAIN
     Dosage: 50 MG, AS NEEDED
     Route: 030

REACTIONS (3)
  - Thrombocytopenia [Recovered/Resolved]
  - Dermatitis bullous [Unknown]
  - Petechiae [Unknown]
